FAERS Safety Report 10313798 (Version 1)
Quarter: 2014Q3

REPORT INFORMATION
  Report Type: Spontaneous
  Country: AR (occurrence: AR)
  Receive Date: 20140718
  Receipt Date: 20140718
  Transmission Date: 20150326
  Serious: Yes (Other)
  Sender: FDA-Public Use
  Company Number: AR-PFIZER INC-2014196795

PATIENT
  Age: 57 Year
  Sex: Female

DRUGS (1)
  1. INLYTA [Suspect]
     Active Substance: AXITINIB
     Indication: RENAL CANCER
     Dosage: 5 MG, 1X/DAY
     Dates: start: 20140426, end: 20140702

REACTIONS (2)
  - Oral fungal infection [Recovered/Resolved]
  - Gastrointestinal fungal infection [Recovered/Resolved]

NARRATIVE: CASE EVENT DATE: 20140702
